FAERS Safety Report 8832706 (Version 1)
Quarter: 2012Q4

REPORT INFORMATION
  Report Type: 
  Country: US (occurrence: US)
  Receive Date: 20121010
  Receipt Date: 20121010
  Transmission Date: 20130627
  Serious: No
  Sender: FDA-Public Use
  Company Number: US-009507513-1210USA002223

PATIENT
  Sex: Female
  Weight: 51.25 kg

DRUGS (9)
  1. VICTRELIS [Suspect]
     Dosage: 4 DF, q8h
     Route: 048
  2. PEGASYS [Suspect]
  3. RIBAPAK [Suspect]
     Dosage: 1000 mg, qd
  4. CELEBREX [Concomitant]
  5. XANAX [Concomitant]
  6. VYVANSE [Concomitant]
  7. OMEPRAZOLE [Concomitant]
  8. SUDAFED 24 HOUR [Concomitant]
     Dosage: 240 mg, UNK
  9. AMITRIPTYLIN [Concomitant]

REACTIONS (9)
  - Disturbance in attention [Recovering/Resolving]
  - White blood cell count decreased [Unknown]
  - Depression [Recovering/Resolving]
  - Anaemia [Unknown]
  - Fatigue [Unknown]
  - Diarrhoea [Unknown]
  - Dysgeusia [Unknown]
  - Alopecia [Unknown]
  - Dry skin [Unknown]
